FAERS Safety Report 8016255-0 (Version None)
Quarter: 2011Q4

REPORT INFORMATION
  Report Type: 
  Country: None (occurrence: None)
  Receive Date: 20111230
  Receipt Date: 20111222
  Transmission Date: 20120403
  Serious: Yes (Hospitalization, Disabling, Other)
  Sender: FDA-Public Use
  Company Number: US-MERCK-0802USA02812

PATIENT
  Age: 50 Year
  Sex: Female
  Weight: 83 kg

DRUGS (7)
  1. LIPITOR [Concomitant]
     Route: 065
  2. CALCIUM (UNSPECIFIED) [Concomitant]
     Route: 065
  3. VITAMIN D (UNSPECIFIED) [Concomitant]
     Route: 065
  4. FOSAMAX [Suspect]
     Route: 048
     Dates: start: 20010628
  5. FOSAMAX [Suspect]
     Indication: OSTEOPOROSIS PROPHYLAXIS
     Route: 048
     Dates: start: 19971220, end: 20010419
  6. FOSAMAX PLUS D [Suspect]
     Indication: POSTMENOPAUSE
     Route: 048
     Dates: start: 20060203
  7. SYNTHROID [Concomitant]
     Indication: HYPOTHYROIDISM
     Route: 048

REACTIONS (39)
  - FEMUR FRACTURE [None]
  - CONTUSION [None]
  - HYPERSENSITIVITY [None]
  - UMBILICAL HERNIA [None]
  - RAYNAUD'S PHENOMENON [None]
  - NERVOUSNESS [None]
  - GASTROINTESTINAL DISORDER [None]
  - NAUSEA [None]
  - ERYTHEMA [None]
  - DEVICE FAILURE [None]
  - FALL [None]
  - FOOT DEFORMITY [None]
  - ONYCHOMYCOSIS [None]
  - DYSPEPSIA [None]
  - ANGIOPATHY [None]
  - BLOOD AMYLASE INCREASED [None]
  - OSTEOARTHRITIS [None]
  - LOW TURNOVER OSTEOPATHY [None]
  - INFECTION [None]
  - WRIST FRACTURE [None]
  - FRACTURE [None]
  - HERNIA [None]
  - NEUROPATHY PERIPHERAL [None]
  - FRACTURE NONUNION [None]
  - CHOLELITHIASIS [None]
  - ANXIETY [None]
  - BUNION [None]
  - HYPERTENSION [None]
  - ARTHRALGIA [None]
  - ABDOMINAL PAIN UPPER [None]
  - OSTEOPENIA [None]
  - JOINT EFFUSION [None]
  - CARPAL TUNNEL SYNDROME [None]
  - NASOPHARYNGITIS [None]
  - PAIN IN EXTREMITY [None]
  - HAEMORRHOIDS [None]
  - BONE LOSS [None]
  - INTESTINAL POLYP [None]
  - OSTEOPOROSIS [None]
